FAERS Safety Report 10884558 (Version 1)
Quarter: 2015Q1

REPORT INFORMATION
  Report Type: Spontaneous
  Country: US (occurrence: None)
  Receive Date: 20150227
  Receipt Date: 20150227
  Transmission Date: 20150721
  Serious: Yes (Hospitalization)
  Sender: FDA-Public Use
  Company Number: None

PATIENT
  Age: 71 Year
  Sex: Male
  Weight: 80.8 kg

DRUGS (2)
  1. RIVAROXABAN [Suspect]
     Active Substance: RIVAROXABAN
     Indication: ATRIAL FIBRILLATION
     Dosage: 15 MG PM PO
     Route: 048
     Dates: start: 20141218, end: 20150222
  2. RIVAROXABAN [Suspect]
     Active Substance: RIVAROXABAN
     Indication: MITRAL VALVE REPAIR
     Dosage: 15 MG PM PO
     Route: 048
     Dates: start: 20141218, end: 20150222

REACTIONS (4)
  - Liver injury [None]
  - Hepatic enzyme increased [None]
  - Confusional state [None]
  - International normalised ratio abnormal [None]

NARRATIVE: CASE EVENT DATE: 20150222
